FAERS Safety Report 7524832-6 (Version None)
Quarter: 2011Q2

REPORT INFORMATION
  Report Type: 
  Country: None (occurrence: None)
  Receive Date: 20110606
  Receipt Date: 20101220
  Transmission Date: 20111010
  Serious: Yes (Hospitalization, Other)
  Sender: FDA-Public Use
  Company Number: US-BAYER-201027328NA

PATIENT
  Age: 18 Year
  Sex: Female
  Weight: 55 kg

DRUGS (4)
  1. TYLENOL 1 [Concomitant]
     Dosage: UNK UNK, PRN
  2. YAZ [Suspect]
     Indication: ORAL CONTRACEPTION
     Dosage: UNK UNK, QD
     Dates: start: 20080408, end: 20080526
  3. AMOXICILLIN [Concomitant]
     Indication: SINUSITIS
     Dosage: 875 MG, TID
     Route: 048
     Dates: start: 20080401, end: 20080401
  4. FIORICET [Concomitant]

REACTIONS (8)
  - EMBOLIC CEREBRAL INFARCTION [None]
  - MENTAL DISORDER [None]
  - ENCEPHALOMALACIA [None]
  - CEREBROVASCULAR ACCIDENT [None]
  - MOBILITY DECREASED [None]
  - CEREBRAL INFARCTION [None]
  - HEADACHE [None]
  - ARRHYTHMIA [None]
